FAERS Safety Report 6398204-4 (Version None)
Quarter: 2009Q4

REPORT INFORMATION
  Report Type: 
  Country: None (occurrence: None)
  Receive Date: 20091013
  Receipt Date: 20090929
  Transmission Date: 20100525
  Serious: Yes (Other)
  Sender: FDA-Public Use
  Company Number: PHHY2009GB38116

PATIENT
  Sex: Female
  Weight: 75 kg

DRUGS (4)
  1. CLOZARIL [Suspect]
     Indication: SCHIZOPHRENIA
     Dosage: 50MG MANE, 300MG NOCTE
     Dates: start: 20090428
  2. CLOZARIL [Suspect]
     Dosage: 300 MG DAILY
  3. CITALOPRAM HYDROBROMIDE [Concomitant]
     Indication: DEPRESSION
     Dosage: 50 MG
     Route: 048
     Dates: start: 20090801
  4. CITALOPRAM HYDROBROMIDE [Concomitant]
     Dosage: 60 MG, UNK

REACTIONS (5)
  - ANTIPSYCHOTIC DRUG LEVEL INCREASED [None]
  - DIZZINESS [None]
  - DYSPNOEA [None]
  - LOSS OF CONSCIOUSNESS [None]
  - TONGUE PARALYSIS [None]
